FAERS Safety Report 5524132-X (Version None)
Quarter: 2007Q4

REPORT INFORMATION
  Report Type: 
  Country: None (occurrence: None)
  Receive Date: 20071121
  Receipt Date: 20071115
  Transmission Date: 20080405
  Serious: Yes (Hospitalization, Disabling)
  Sender: FDA-Public Use
  Company Number: MY-MERCK-0711MYS00001

PATIENT
  Age: 20 Year
  Sex: Female
  Weight: 55 kg

DRUGS (24)
  1. CANCIDAS [Suspect]
     Indication: FUNGAL INFECTION
     Route: 041
     Dates: start: 20071022, end: 20071022
  2. CANCIDAS [Suspect]
     Route: 041
     Dates: start: 20071023, end: 20071025
  3. CANCIDAS [Suspect]
     Route: 041
     Dates: start: 20071026, end: 20071027
  4. CANCIDAS [Suspect]
     Route: 041
     Dates: start: 20071028, end: 20071028
  5. CANCIDAS [Suspect]
     Indication: FEBRILE NEUTROPENIA
     Route: 041
     Dates: start: 20071022, end: 20071022
  6. CANCIDAS [Suspect]
     Route: 041
     Dates: start: 20071023, end: 20071025
  7. CANCIDAS [Suspect]
     Route: 041
     Dates: start: 20071026, end: 20071027
  8. CANCIDAS [Suspect]
     Route: 041
     Dates: start: 20071028, end: 20071028
  9. CYCLOSPORINE [Concomitant]
     Indication: IMMUNOSUPPRESSION
     Route: 041
     Dates: start: 20071022, end: 20071025
  10. CYCLOSPORINE [Concomitant]
     Route: 041
     Dates: start: 20071026, end: 20071027
  11. CYCLOSPORINE [Concomitant]
     Route: 041
     Dates: start: 20071028, end: 20071028
  12. CYCLOSPORINE [Concomitant]
     Route: 041
  13. TRANEXAMIC ACID [Concomitant]
     Indication: HAEMORRHAGIC DIATHESIS
     Route: 042
  14. PANTOPRAZOLE [Concomitant]
     Indication: UPPER GASTROINTESTINAL HAEMORRHAGE
     Route: 030
     Dates: start: 20071018, end: 20071026
  15. ACYCLOVIR [Concomitant]
     Indication: INFECTION PROPHYLAXIS
     Route: 042
  16. ACYCLOVIR [Concomitant]
     Indication: VIRAL INFECTION
     Route: 042
  17. VANCOMYCIN [Concomitant]
     Indication: SEPSIS
     Route: 042
  18. TIENAM [Concomitant]
     Indication: SEPSIS
     Route: 041
  19. TAZOCIN [Concomitant]
     Indication: SEPSIS
     Route: 042
  20. NORETHINDRONE [Concomitant]
     Indication: HAEMORRHAGE
     Route: 042
  21. NORETHINDRONE [Concomitant]
     Indication: PROPHYLAXIS
     Route: 042
  22. DOPAMINE HYDROCHLORIDE [Concomitant]
     Indication: SEPTIC SHOCK
     Route: 041
  23. NOREPINEPHRINE BITARTRATE [Concomitant]
     Indication: SEPTIC SHOCK
     Route: 041
  24. MIDAZOLAM [Concomitant]
     Indication: SEDATION
     Route: 041

REACTIONS (3)
  - ACCIDENTAL OVERDOSE [None]
  - INCORRECT DOSE ADMINISTERED [None]
  - RENAL IMPAIRMENT [None]
